FAERS Safety Report 6540644-4 (Version None)
Quarter: 2010Q1

REPORT INFORMATION
  Report Type: 
  Country: None (occurrence: None)
  Receive Date: 20100112
  Receipt Date: 20090914
  Transmission Date: 20100710
  Serious: No
  Sender: FDA-Public Use
  Company Number: 2009-00603

PATIENT
  Age: 61 Year
  Sex: Female
  Weight: 88.4514 kg

DRUGS (4)
  1. COLD REMEDY ORAL MIST [Suspect]
     Dosage: QID FOR 4 DAYS; END OF JUNE FOR 4 DAYS
  2. SYNTHROID [Concomitant]
  3. ZOCOR [Concomitant]
  4. METOPROLOL [Concomitant]

REACTIONS (2)
  - AGEUSIA [None]
  - ANOSMIA [None]
